FAERS Safety Report 9840778 (Version 1)
Quarter: 2013Q4

REPORT INFORMATION
  Report Type: Spontaneous
  Country: US (occurrence: None)
  Receive Date: 20131211
  Receipt Date: 20131211
  Transmission Date: 20140711
  Serious: Yes (Other)
  Sender: FDA-Public Use
  Company Number: ALL1-2013-00137

PATIENT
  Age: 11 Year
  Sex: Female
  Weight: 43.5 kg

DRUGS (1)
  1. VYVANSE (LISDEXAMFETAMINE DIMESYLATE) CAPSULE [Suspect]
     Indication: ATTENTION DEFICIT/HYPERACTIVITY DISORDER
     Route: 048
     Dates: start: 201203, end: 201212

REACTIONS (5)
  - Abnormal loss of weight [None]
  - Trichotillomania [None]
  - Hypophagia [None]
  - Dermatillomania [None]
  - Nervousness [None]
